FAERS Safety Report 15053910 (Version 4)
Quarter: 2018Q4

REPORT INFORMATION
  Report Type: Spontaneous
  Country: US (occurrence: US)
  Receive Date: 20180622
  Receipt Date: 20181219
  Transmission Date: 20190204
  Serious: Yes (Disabling, Other)
  Sender: FDA-Public Use
  Company Number: US-OTSUKA-2018_016088

PATIENT
  Age: 30 Year
  Sex: Female
  Weight: 115.19 kg

DRUGS (31)
  1. WELLBUTRIN [Concomitant]
     Active Substance: BUPROPION HYDROCHLORIDE
     Indication: PRODUCT USED FOR UNKNOWN INDICATION
     Dosage: UNK, QD (EVERY MORNING)
     Route: 048
     Dates: start: 20151223, end: 20160606
  2. ARIPIPRAZOLE LAUROXIL [Concomitant]
     Active Substance: ARIPIPRAZOLE LAUROXIL
     Indication: PRODUCT USED FOR UNKNOWN INDICATION
     Dosage: UNK AS DIRECTED
     Route: 030
     Dates: start: 20170817
  3. LACTATED RINGERS SOLUTION [Concomitant]
     Active Substance: CALCIUM CHLORIDE\POTASSIUM CHLORIDE\SODIUM CHLORIDE\SODIUM LACTATE
     Indication: PRODUCT USED FOR UNKNOWN INDICATION
     Dosage: 50 ML/HR
     Route: 042
     Dates: start: 20160516, end: 20160516
  4. NARCAN [Concomitant]
     Active Substance: NALOXONE HYDROCHLORIDE
     Indication: PRODUCT USED FOR UNKNOWN INDICATION
     Dosage: 0.04 MG, EVERY 15 MIN PRN
     Route: 042
     Dates: start: 20160516, end: 20160516
  5. PHENERGAN [Concomitant]
     Active Substance: PROMETHAZINE HYDROCHLORIDE
     Indication: PRODUCT USED FOR UNKNOWN INDICATION
     Dosage: 6.25 MG, EVERY 6 HOURS PRN
     Route: 042
     Dates: start: 20160516, end: 20160516
  6. PROTONIX [Concomitant]
     Active Substance: PANTOPRAZOLE SODIUM
     Indication: PRODUCT USED FOR UNKNOWN INDICATION
     Dosage: 1 DF, QD
     Route: 048
  7. CLEOCIN [Concomitant]
     Active Substance: CLINDAMYCIN PHOSPHATE
     Indication: PRODUCT USED FOR UNKNOWN INDICATION
     Dosage: 1 DF, QID
     Route: 048
     Dates: start: 20151224, end: 20160511
  8. ZOFRAN [Concomitant]
     Active Substance: ONDANSETRON HYDROCHLORIDE
     Indication: PRODUCT USED FOR UNKNOWN INDICATION
     Dosage: 4 MG/ 2ML, EVERY 8 HOURS PRN
     Route: 042
     Dates: start: 20160516, end: 20160516
  9. BREXPIPRAZOLE [Concomitant]
     Active Substance: BREXPIPRAZOLE
     Indication: PRODUCT USED FOR UNKNOWN INDICATION
     Dosage: UNK, QD (AT BEDTIME)
     Route: 048
     Dates: start: 20161117, end: 20170320
  10. BREXPIPRAZOLE [Concomitant]
     Active Substance: BREXPIPRAZOLE
     Dosage: UNK, QD (AT BEDTIME)
     Route: 048
     Dates: start: 20160818, end: 20161117
  11. WELLBUTRIN [Concomitant]
     Active Substance: BUPROPION HYDROCHLORIDE
     Dosage: 200 MG, BID (AS DIRECTED 15 ML)
     Route: 048
  12. BENZTROPINE. [Concomitant]
     Active Substance: BENZTROPINE
     Indication: PRODUCT USED FOR UNKNOWN INDICATION
     Dosage: UNK, QD
     Route: 048
     Dates: start: 20160705, end: 20160818
  13. PERIDEX [Concomitant]
     Active Substance: CHLORHEXIDINE GLUCONATE
     Indication: PRODUCT USED FOR UNKNOWN INDICATION
     Dosage: 15 ML, BID
     Route: 048
  14. PERIDEX [Concomitant]
     Active Substance: CHLORHEXIDINE GLUCONATE
     Dosage: 118 UNK, UNK
     Route: 048
     Dates: start: 20141120
  15. ABILIFY [Suspect]
     Active Substance: ARIPIPRAZOLE
     Indication: BIPOLAR DISORDER
     Dosage: 15 MG, QD
     Route: 065
     Dates: start: 2005, end: 2015
  16. DIPHENHYDRAMINE HCL [Concomitant]
     Active Substance: DIPHENHYDRAMINE HYDROCHLORIDE
     Indication: PRODUCT USED FOR UNKNOWN INDICATION
     Dosage: UNK, QD
     Route: 048
     Dates: start: 20141028, end: 20160606
  17. SUBLIMAZE [Concomitant]
     Active Substance: FENTANYL CITRATE
     Indication: PRODUCT USED FOR UNKNOWN INDICATION
     Dosage: 25 ?G, EVERY 5 MIN PRN
     Route: 042
     Dates: start: 20160516, end: 20160516
  18. CARIPRAZINE [Concomitant]
     Active Substance: CARIPRAZINE
     Indication: PRODUCT USED FOR UNKNOWN INDICATION
     Dosage: UNK, QD
     Route: 048
     Dates: start: 20160606, end: 20160818
  19. ZYPREXA [Concomitant]
     Active Substance: OLANZAPINE
     Indication: PRODUCT USED FOR UNKNOWN INDICATION
     Dosage: 2 DF, QD (AT BEDTIME)
     Route: 048
     Dates: start: 20141124, end: 20160511
  20. ZYPREXA [Concomitant]
     Active Substance: OLANZAPINE
     Dosage: 2 DF, QD (AT BEDTIME)
     Route: 048
     Dates: start: 20170420, end: 20170817
  21. LAMOTRIGINE. [Concomitant]
     Active Substance: LAMOTRIGINE
     Indication: PRODUCT USED FOR UNKNOWN INDICATION
     Dosage: UNK, AS DIRECTED
     Route: 065
     Dates: start: 20170420, end: 20170817
  22. VEETIDS [Concomitant]
     Active Substance: PENICILLIN V POTASSIUM
     Indication: PRODUCT USED FOR UNKNOWN INDICATION
     Dosage: 1 DF, QID
     Route: 048
  23. ULTRAM [Concomitant]
     Active Substance: TRAMADOL HYDROCHLORIDE
     Indication: ORAL PAIN
     Dosage: 1 DF, EVERY 6 HOURS (AS NEEDED)
     Route: 048
  24. ABILIFY [Suspect]
     Active Substance: ARIPIPRAZOLE
     Indication: POST-TRAUMATIC STRESS DISORDER
     Dosage: UNK, QD
     Route: 048
     Dates: end: 20160606
  25. NICOTINE. [Concomitant]
     Active Substance: NICOTINE
     Indication: PRODUCT USED FOR UNKNOWN INDICATION
     Dosage: AS DIRECTED
     Route: 048
     Dates: start: 20161117, end: 20170420
  26. HYDROXYZINE PAMOATE. [Concomitant]
     Active Substance: HYDROXYZINE PAMOATE
     Indication: PRODUCT USED FOR UNKNOWN INDICATION
     Dosage: UNK, QD (AT BED TIME)
     Route: 048
     Dates: start: 20170817
  27. PETROLEUM JELLY [Concomitant]
     Active Substance: PETROLATUM
     Indication: DRY SKIN
     Dosage: UNK, AS NEEDED
     Route: 061
  28. DILAUDID [Concomitant]
     Active Substance: HYDROMORPHONE HYDROCHLORIDE
     Indication: PRODUCT USED FOR UNKNOWN INDICATION
     Dosage: 0.4 MG, EVERY 5 MIN PRN
     Route: 042
     Dates: start: 20160516, end: 20160516
  29. DILAUDID [Concomitant]
     Active Substance: HYDROMORPHONE HYDROCHLORIDE
     Dosage: 0.6 MG, EVERY 5 MIN PRN
     Route: 042
     Dates: start: 20160516, end: 20160516
  30. LACTATED RINGERS SOLUTION [Concomitant]
     Active Substance: CALCIUM CHLORIDE\POTASSIUM CHLORIDE\SODIUM CHLORIDE\SODIUM LACTATE
     Dosage: 125 ML/HR
     Route: 042
     Dates: start: 20160516, end: 20160516
  31. SUBLIMAZE [Concomitant]
     Active Substance: FENTANYL CITRATE
     Dosage: 50 ?G, EVERY 5 MIN PRN
     Route: 042

REACTIONS (25)
  - Mean cell volume decreased [Unknown]
  - Condition aggravated [Unknown]
  - Impulse-control disorder [Unknown]
  - Road traffic accident [Unknown]
  - Syncope [Unknown]
  - Eating disorder [Recovered/Resolved]
  - Anxiety [Unknown]
  - Disability [Unknown]
  - Gastrointestinal surgery [Unknown]
  - Red cell distribution width increased [Unknown]
  - Injury [Unknown]
  - Theft [Recovered/Resolved]
  - White blood cell count increased [Unknown]
  - Emotional distress [Unknown]
  - Epistaxis [Unknown]
  - Compulsive shopping [Recovered/Resolved]
  - Shoplifting [Recovered/Resolved]
  - Pain [Unknown]
  - Obsessive-compulsive disorder [Unknown]
  - Product use in unapproved indication [Unknown]
  - Mean cell haemoglobin decreased [Unknown]
  - Anhedonia [Unknown]
  - Compulsive sexual behaviour [Recovered/Resolved]
  - Gambling disorder [Recovered/Resolved]
  - Economic problem [Unknown]

NARRATIVE: CASE EVENT DATE: 200601
